FAERS Safety Report 14657588 (Version 4)
Quarter: 2018Q3

REPORT INFORMATION
  Report Type: Report from Study
  Country: None (occurrence: US)
  Receive Date: 20180320
  Receipt Date: 20180903
  Transmission Date: 20181010
  Serious: Yes (Hospitalization, Other)
  Sender: FDA-Public Use
  Company Number: US-ABBVIE-16K-163-1727807-00

PATIENT
  Age: 69 Year
  Sex: Female
  Weight: 78.09 kg

DRUGS (26)
  1. HUMIRA [Suspect]
     Active Substance: ADALIMUMAB
     Indication: CROHN^S DISEASE
     Route: 058
     Dates: start: 2006, end: 201501
  2. ENTYVIO [Suspect]
     Active Substance: VEDOLIZUMAB
     Indication: PRODUCT USED FOR UNKNOWN INDICATION
     Route: 065
     Dates: start: 2015
  3. PREDNISONE. [Suspect]
     Active Substance: PREDNISONE
     Indication: PRODUCT USED FOR UNKNOWN INDICATION
     Route: 065
     Dates: start: 1993
  4. PROZAC [Concomitant]
     Active Substance: FLUOXETINE HYDROCHLORIDE
     Indication: DEPRESSION
  5. CLARITIN [Concomitant]
     Active Substance: LORATADINE
     Indication: SEASONAL ALLERGY
  6. VITAMIN D [Concomitant]
     Active Substance: CHOLECALCIFEROL
     Indication: VITAMIN SUPPLEMENTATION
  7. IRON [Concomitant]
     Active Substance: IRON
     Indication: MINERAL SUPPLEMENTATION
  8. PROTONIX [Concomitant]
     Active Substance: PANTOPRAZOLE SODIUM
     Indication: GASTROOESOPHAGEAL REFLUX DISEASE
  9. VITAMIN C [Concomitant]
     Active Substance: ASCORBIC ACID
     Indication: VITAMIN SUPPLEMENTATION
  10. HYDROCORTISONE. [Concomitant]
     Active Substance: HYDROCORTISONE
     Indication: INFLAMMATION
  11. VITAMIN E [Concomitant]
     Active Substance: .ALPHA.-TOCOPHEROL
     Indication: VITAMIN SUPPLEMENTATION
  12. PHENERGAN [Suspect]
     Active Substance: PROMETHAZINE HYDROCHLORIDE
     Indication: NAUSEA
     Route: 065
  13. FENTANYL. [Suspect]
     Active Substance: FENTANYL
     Indication: ABDOMINAL PAIN
  14. AMLODIPINE [Concomitant]
     Active Substance: AMLODIPINE BESYLATE
     Indication: HYPERTENSION
  15. HUMIRA [Suspect]
     Active Substance: ADALIMUMAB
     Route: 058
     Dates: start: 20160728
  16. LISINOPRIL. [Concomitant]
     Active Substance: LISINOPRIL
     Indication: HYPERTENSION
  17. HYDROCHLOROTHIAZIDE. [Concomitant]
     Active Substance: HYDROCHLOROTHIAZIDE
     Indication: HYPERTENSION
  18. WELLBUTRIN [Concomitant]
     Active Substance: BUPROPION HYDROCHLORIDE
     Indication: DEPRESSION
  19. REMERON [Concomitant]
     Active Substance: MIRTAZAPINE
     Indication: DEPRESSION
  20. FENTANYL. [Suspect]
     Active Substance: FENTANYL
     Indication: NAUSEA
     Route: 065
  21. VITAMIN B12 [Concomitant]
     Active Substance: CYANOCOBALAMIN
     Indication: VITAMIN SUPPLEMENTATION
  22. ATORVASTATIN [Concomitant]
     Active Substance: ATORVASTATIN
     Indication: BLOOD CHOLESTEROL INCREASED
  23. ZOFRAN [Concomitant]
     Active Substance: ONDANSETRON HYDROCHLORIDE
     Indication: NAUSEA
  24. HUMIRA [Suspect]
     Active Substance: ADALIMUMAB
     Route: 058
     Dates: start: 201604, end: 201606
  25. PHENERGAN [Suspect]
     Active Substance: PROMETHAZINE HYDROCHLORIDE
     Indication: ABDOMINAL PAIN
  26. CALCIUM [Concomitant]
     Active Substance: CALCIUM
     Indication: MINERAL SUPPLEMENTATION

REACTIONS (26)
  - Hospitalisation [Unknown]
  - Weight increased [Not Recovered/Not Resolved]
  - Arthralgia [Unknown]
  - Addison^s disease [Unknown]
  - Left ventricular failure [Not Recovered/Not Resolved]
  - Abdominal pain [Unknown]
  - Pain in extremity [Not Recovered/Not Resolved]
  - Hypersensitivity [Unknown]
  - Intestinal obstruction [Not Recovered/Not Resolved]
  - Pneumonia [Recovered/Resolved]
  - Vein disorder [Not Recovered/Not Resolved]
  - Depression [Recovering/Resolving]
  - Back pain [Not Recovered/Not Resolved]
  - Pneumonia [Recovering/Resolving]
  - Somnolence [Unknown]
  - Neuropathy peripheral [Not Recovered/Not Resolved]
  - Nausea [Unknown]
  - Contusion [Not Recovered/Not Resolved]
  - Rales [Unknown]
  - Blood thyroid stimulating hormone decreased [Not Recovered/Not Resolved]
  - Headache [Recovering/Resolving]
  - Epinephrine decreased [Unknown]
  - Nasopharyngitis [Recovering/Resolving]
  - Cardiac failure congestive [Recovering/Resolving]
  - Mycobacterium avium complex infection [Recovered/Resolved]
  - Crohn^s disease [Unknown]

NARRATIVE: CASE EVENT DATE: 2015
